FAERS Safety Report 20491067 (Version 1)
Quarter: 2022Q1

REPORT INFORMATION
  Report Type: Spontaneous
  Country: PR (occurrence: PR)
  Receive Date: 20220218
  Receipt Date: 20220218
  Transmission Date: 20220424
  Serious: No
  Sender: FDA-Public Use
  Company Number: PR-BAYER-2022A023675

PATIENT
  Age: 30 Year
  Sex: Female

DRUGS (1)
  1. GADOXETATE DISODIUM [Suspect]
     Active Substance: GADOXETATE DISODIUM
     Dosage: UNK
     Dates: start: 20220215, end: 20220215

REACTIONS (1)
  - Urticaria [Recovered/Resolved]

NARRATIVE: CASE EVENT DATE: 20220215
